FAERS Safety Report 11679102 (Version 1)
Quarter: 2015Q4

REPORT INFORMATION
  Report Type: Spontaneous
  Country: US (occurrence: US)
  Receive Date: 20151027
  Receipt Date: 20151027
  Transmission Date: 20160304
  Serious: No
  Sender: FDA-Public Use
  Company Number: US-ELI_LILLY_AND_COMPANY-US201011005980

PATIENT
  Sex: Male

DRUGS (4)
  1. PROCARDIA [Concomitant]
     Active Substance: NIFEDIPINE
  2. WARFARIN [Concomitant]
     Active Substance: WARFARIN
  3. COLCHICINE. [Concomitant]
     Active Substance: COLCHICINE
  4. FORTEO [Suspect]
     Active Substance: TERIPARATIDE
     Indication: OSTEOPOROSIS
     Dates: start: 201010

REACTIONS (7)
  - Arthralgia [Unknown]
  - Musculoskeletal discomfort [Unknown]
  - Pain [Unknown]
  - Bone pain [Unknown]
  - Chest pain [Unknown]
  - Headache [Unknown]
  - Pelvic pain [Unknown]
